FAERS Safety Report 8108295-8 (Version None)
Quarter: 2012Q1

REPORT INFORMATION
  Report Type: 
  Country: None (occurrence: None)
  Receive Date: 20120202
  Receipt Date: 20120123
  Transmission Date: 20120608
  Serious: Yes (Other)
  Sender: FDA-Public Use
  Company Number: PHHY2011DE112899

PATIENT
  Sex: Female

DRUGS (1)
  1. DIOVAN [Suspect]
     Indication: HYPERTENSION
     Dosage: 0.5 DF(80 MG), DAILY
     Route: 048
     Dates: start: 20040101

REACTIONS (7)
  - BLISTER [None]
  - VASCULITIS [None]
  - SKIN HYPERTROPHY [None]
  - PRURITUS [None]
  - SKIN DISCOLOURATION [None]
  - WRONG TECHNIQUE IN DRUG USAGE PROCESS [None]
  - RASH [None]
